FAERS Safety Report 12629159 (Version 4)
Quarter: 2016Q4

REPORT INFORMATION
  Report Type: Spontaneous
  Country: IT (occurrence: IT)
  Receive Date: 20160808
  Receipt Date: 20161221
  Transmission Date: 20170207
  Serious: Yes (Other)
  Sender: FDA-Public Use
  Company Number: IT-TEVA-681926ACC

PATIENT
  Sex: Female

DRUGS (1)
  1. PRAMIPEXOLE. [Suspect]
     Active Substance: PRAMIPEXOLE
     Indication: PARKINSON^S DISEASE
     Dosage: 2.1 MILLIGRAM DAILY;
     Route: 048

REACTIONS (4)
  - Drug effect decreased [Unknown]
  - Condition aggravated [Unknown]
  - Product substitution issue [Unknown]
  - Motor dysfunction [Unknown]
